FAERS Safety Report 17534590 (Version 1)
Quarter: 2020Q1

REPORT INFORMATION
  Report Type: Spontaneous
  Country: US (occurrence: US)
  Receive Date: 20200312
  Receipt Date: 20200312
  Transmission Date: 20200409
  Serious: No
  Sender: FDA-Public Use
  Company Number: US-PFIZER INC-2017497347

PATIENT
  Age: 59 Year
  Sex: Male
  Weight: 90.71 kg

DRUGS (1)
  1. RAPAMUNE [Suspect]
     Active Substance: SIROLIMUS
     Indication: HEART TRANSPLANT
     Dosage: 1 MG, 1X/DAY (QDAY AT 1 TAB AT THE SAME TIME EVERY DAY IN RELATION TO MEALS)
     Route: 048
     Dates: start: 20171114

REACTIONS (3)
  - Memory impairment [Unknown]
  - Product use in unapproved indication [Unknown]
  - Off label use [Unknown]
